FAERS Safety Report 4374845-0 (Version None)
Quarter: 2004Q2

REPORT INFORMATION
  Report Type: 
  Country: None (occurrence: None)
  Receive Date: 20040604
  Receipt Date: 20040525
  Transmission Date: 20050107
  Serious: Yes (Death)
  Sender: FDA-Public Use
  Company Number: 04P-167-0262353-00

PATIENT
  Age: 47 Year
  Sex: Male

DRUGS (7)
  1. MERIDIA [Suspect]
     Dosage: 10 MG, 1 IN 1 D
     Dates: start: 20040420
  2. METFORMIN HCL [Concomitant]
  3. SIMVASTATIN [Concomitant]
  4. AMLODIPINE [Concomitant]
  5. ASPIRIN [Concomitant]
  6. FUROSEMIDE [Concomitant]
  7. ATENOLOL [Concomitant]

REACTIONS (1)
  - ANEURYSM [None]
